FAERS Safety Report 7960708-8 (Version None)
Quarter: 2011Q4

REPORT INFORMATION
  Report Type: 
  Country: None (occurrence: None)
  Receive Date: 20111206
  Receipt Date: 20111130
  Transmission Date: 20120403
  Serious: Yes (Death, Hospitalization, Other)
  Sender: FDA-Public Use
  Company Number: JP-CELGENEUS-087-50794-11103011

PATIENT
  Sex: Male
  Weight: 44 kg

DRUGS (37)
  1. VIDAZA [Suspect]
     Dosage: 75 MILLIGRAM/SQ. METER
     Route: 058
     Dates: start: 20110615, end: 20110621
  2. EXJADE [Concomitant]
     Dosage: 500 MILLIGRAM
     Route: 048
  3. LANSOPRAZOLE [Concomitant]
     Dosage: 15 MILLIGRAM
     Route: 048
  4. CELOOP [Concomitant]
     Dosage: 50 MILLIGRAM
     Route: 048
  5. ALOSENN [Concomitant]
     Dosage: .5 GRAM
     Route: 041
  6. GRANISETRON HCL [Concomitant]
     Route: 041
     Dates: start: 20110713, end: 20110719
  7. CIPROFLOXACIN [Concomitant]
     Dosage: 300 MILLIGRAM
     Route: 041
     Dates: start: 20110813, end: 20110827
  8. ITRACONAZOLE [Concomitant]
     Dosage: 500 MILLIGRAM
     Route: 041
     Dates: start: 20110530, end: 20110608
  9. MAGMITT [Concomitant]
     Dosage: 500 MILLIGRAM
     Route: 048
  10. VANMYCIN [Concomitant]
     Dosage: .5 GRAM
     Route: 041
     Dates: start: 20110903, end: 20110916
  11. PYDOXAL [Concomitant]
     Dosage: 10 MILLIGRAM
     Route: 048
  12. OLOPATADINE HCL [Concomitant]
     Dosage: 5 MILLIGRAM
     Route: 048
  13. ZOLPIDEM [Concomitant]
     Dosage: 5 MILLIGRAM
     Route: 048
  14. CIPROFLOXACIN [Concomitant]
     Dosage: 300 MILLIGRAM
     Route: 041
     Dates: start: 20110520, end: 20110526
  15. MEROPENEM HYDRATE [Concomitant]
     Dosage: .5 GRAM
     Route: 041
     Dates: start: 20110805, end: 20110813
  16. VANMYCIN [Concomitant]
     Dosage: .5 GRAM
     Route: 041
     Dates: start: 20110606, end: 20110619
  17. CEFON (SULBACTAM) [Concomitant]
     Dosage: 1 GRAM
     Route: 041
     Dates: start: 20110702, end: 20110707
  18. GRANISETRON HCL [Concomitant]
     Route: 041
     Dates: start: 20110506, end: 20110513
  19. GRANISETRON HCL [Concomitant]
     Route: 041
     Dates: start: 20110615, end: 20110621
  20. GRANISETRON HCL [Concomitant]
     Dosage: 1 GRAM
     Route: 041
     Dates: start: 20110903, end: 20110913
  21. NISSEKI POLYGLOBIN-N [Concomitant]
     Dosage: 2.5 GRAM
     Route: 041
     Dates: start: 20110602, end: 20110604
  22. PLATIBIT [Concomitant]
     Dosage: 1 GRAM
     Route: 048
  23. PICILLIBACTA [Concomitant]
     Dosage: 1.5 GRAM
     Route: 041
     Dates: end: 20110509
  24. PICILLIBACTA [Concomitant]
     Dosage: 1.5 GRAM
     Route: 041
     Dates: start: 20110607, end: 20110616
  25. PIPERACILLIN SODIUM [Concomitant]
     Dosage: 2 GRAM
     Route: 041
     Dates: start: 20110527, end: 20110530
  26. FLURBIPROFEN [Concomitant]
     Route: 041
     Dates: start: 20110527, end: 20110926
  27. CEFPIROME SULFATE [Concomitant]
     Dosage: 1 GRAM
     Route: 041
     Dates: start: 20110530, end: 20110607
  28. CEFPIROME SULFATE [Concomitant]
     Dosage: 1 GRAM
     Route: 041
     Dates: start: 20110801, end: 20110805
  29. VENECTOMIN [Concomitant]
     Dosage: 200 MILLIGRAM
     Route: 041
     Dates: start: 20110617, end: 20110621
  30. CEFON (SULBACTAM) [Concomitant]
     Dosage: 1 GRAM
     Route: 041
     Dates: start: 20110927, end: 20111001
  31. CEFEPIME DIHYDROCHLORIDE HYDRATE [Concomitant]
     Dosage: 1 GRAM
     Route: 041
     Dates: start: 20110708, end: 20110714
  32. MIDOCIN [Concomitant]
     Dosage: 600 MILLIGRAM
     Route: 041
     Dates: start: 20110527, end: 20110530
  33. MEROPENEM HYDRATE [Concomitant]
     Dosage: .5 GRAM
     Route: 041
     Dates: start: 20110516, end: 20110520
  34. VIDAZA [Suspect]
     Indication: MYELODYSPLASTIC SYNDROME
     Dosage: 75 MILLIGRAM/SQ. METER
     Route: 058
     Dates: start: 20110506, end: 20110512
  35. VIDAZA [Suspect]
     Dosage: 75 MILLIGRAM/SQ. METER
     Route: 058
     Dates: start: 20110713, end: 20110719
  36. LANIRAPID [Concomitant]
     Dosage: .1 MILLIGRAM
     Route: 048
  37. LASIX [Concomitant]
     Dosage: 20 MILLIGRAM
     Route: 041
     Dates: start: 20110617

REACTIONS (6)
  - DEVICE RELATED INFECTION [None]
  - HEPATIC CANDIDIASIS [None]
  - FEBRILE NEUTROPENIA [None]
  - SEPSIS [None]
  - BRONCHITIS [None]
  - PNEUMONIA [None]
